FAERS Safety Report 9220075 (Version 1)
Quarter: 2013Q2

REPORT INFORMATION
  Report Type: Spontaneous
  Country: BR (occurrence: BR)
  Receive Date: 20130409
  Receipt Date: 20130409
  Transmission Date: 20140414
  Serious: Yes (Death, Other)
  Sender: FDA-Public Use
  Company Number: BR-ASTRAZENECA-2013SE22468

PATIENT
  Age: 87 Year
  Sex: Male
  Weight: 58 kg

DRUGS (4)
  1. SYMBICORT TURBUHALER [Suspect]
     Indication: DYSPNOEA
     Dosage: 160/4.5 MCG,TWO TIMES A DAY
     Route: 055
     Dates: start: 2009, end: 2011
  2. SYMBICORT TURBUHALER [Suspect]
     Indication: DYSPNOEA
     Dosage: 160/4.5 MCG, FOUR TIMES A DAY
     Route: 055
     Dates: start: 2011
  3. OMEPRAZOLE [Suspect]
     Indication: DYSPEPSIA
     Dosage: DAILY
     Route: 048
     Dates: start: 2008
  4. RIVOTRIL [Concomitant]
     Indication: ANXIETY
     Dosage: DAILY
     Dates: start: 2011

REACTIONS (4)
  - Metastatic neoplasm [Fatal]
  - Neoplasm [Not Recovered/Not Resolved]
  - Dyspnoea [Recovered/Resolved]
  - Anxiety [Recovered/Resolved]
